FAERS Safety Report 8465393-7 (Version None)
Quarter: 2012Q2

REPORT INFORMATION
  Report Type: 
  Country: None (occurrence: None)
  Receive Date: 20120626
  Receipt Date: 20120611
  Transmission Date: 20120825
  Serious: Yes (Other)
  Sender: FDA-Public Use
  Company Number: JP-PFIZER INC-2012056882

PATIENT
  Age: 79 Year
  Sex: Female

DRUGS (27)
  1. ANPLAG [Concomitant]
  2. CELEBREX [Suspect]
     Indication: RHEUMATOID ARTHRITIS
     Dosage: 200 MG, 2X/DAY
     Route: 048
     Dates: start: 20111116
  3. REMICADE [Concomitant]
  4. LANSOPRAZOLE [Concomitant]
  5. BUPRENORPHINE [Concomitant]
  6. GASMOTIN [Concomitant]
  7. METHOTREXATE [Concomitant]
  8. MAGMITT [Concomitant]
  9. KETOPROFEN [Concomitant]
  10. ETODOLAC [Concomitant]
  11. NEUROTROPIN [Concomitant]
  12. CANDESARTAN CILEXETIL [Concomitant]
  13. CYANOCOBALAMIN [Concomitant]
  14. PREDNISOLONE [Concomitant]
  15. ONE-ALPHA [Concomitant]
  16. BREDININ [Concomitant]
  17. CINAL [Concomitant]
  18. ZOLOFT [Concomitant]
  19. MOTILIUM [Concomitant]
  20. ALLEGRA [Concomitant]
  21. RECALBON [Concomitant]
  22. GRANDAXIN [Concomitant]
  23. ZOLPIDEM [Concomitant]
     Dosage: 5 MG, UNK
  24. SENNOSIDE A+B [Concomitant]
  25. LORFENAMIN [Concomitant]
  26. FERROUS CITRATE [Concomitant]
  27. EDIROL [Concomitant]

REACTIONS (1)
  - POLYARTERITIS NODOSA [None]
